FAERS Safety Report 18034443 (Version 4)
Quarter: 2021Q2

REPORT INFORMATION
  Report Type: Spontaneous
  Country: US (occurrence: US)
  Receive Date: 20200716
  Receipt Date: 20210624
  Transmission Date: 20210717
  Serious: Yes (Other)
  Sender: FDA-Public Use
  Company Number: US-GILEAD-2020-0481709

PATIENT
  Age: 67 Year
  Sex: Male
  Weight: 90.98 kg

DRUGS (40)
  1. TRUVADA [Suspect]
     Active Substance: EMTRICITABINE\TENOFOVIR DISOPROXIL FUMARATE
     Dosage: UNK
     Route: 048
     Dates: start: 20080129, end: 20180417
  2. ATORVASTATIN [Concomitant]
     Active Substance: ATORVASTATIN
  3. TESTOSTERON [TESTOSTERONE] [Concomitant]
  4. ASPIRIN (E.C.) [Concomitant]
     Active Substance: ASPIRIN
  5. VIRAMUNE [Concomitant]
     Active Substance: NEVIRAPINE
  6. LUNESTA [Concomitant]
     Active Substance: ESZOPICLONE
  7. NALTREXONE [Concomitant]
     Active Substance: NALTREXONE
  8. CITALOPRAM [Concomitant]
     Active Substance: CITALOPRAM HYDROBROMIDE
  9. TERBINAFINE. [Concomitant]
     Active Substance: TERBINAFINE
  10. ATRIPLA [Suspect]
     Active Substance: EFAVIRENZ\EMTRICITABINE\TENOFOVIR DISOPROXIL FUMARATE
     Indication: HIV INFECTION
     Dosage: UNK
     Route: 048
     Dates: start: 2006, end: 2019
  11. AMOXICILLIN. [Concomitant]
     Active Substance: AMOXICILLIN
  12. DEPAKOTE [Concomitant]
     Active Substance: DIVALPROEX SODIUM
  13. CIALIS [Concomitant]
     Active Substance: TADALAFIL
  14. VIREAD [Suspect]
     Active Substance: TENOFOVIR DISOPROXIL FUMARATE
     Dosage: UNK
     Route: 048
     Dates: start: 20060111, end: 20080129
  15. TRUVADA [Suspect]
     Active Substance: EMTRICITABINE\TENOFOVIR DISOPROXIL FUMARATE
     Indication: HIV INFECTION
     Dosage: UNK
     Route: 048
     Dates: start: 200801, end: 201805
  16. DEXAMETHASONE. [Concomitant]
     Active Substance: DEXAMETHASONE
  17. PANTOPRAZOLE [Concomitant]
     Active Substance: PANTOPRAZOLE
  18. CELEBREX [Concomitant]
     Active Substance: CELECOXIB
  19. LORAZEPAM. [Concomitant]
     Active Substance: LORAZEPAM
  20. MODAFINIL. [Concomitant]
     Active Substance: MODAFINIL
  21. PERCOCET [Concomitant]
     Active Substance: ACETAMINOPHEN\OXYCODONE HYDROCHLORIDE
  22. ACETAMINOPHEN. [Concomitant]
     Active Substance: ACETAMINOPHEN
  23. BACTRIM [Concomitant]
     Active Substance: SULFAMETHOXAZOLE\TRIMETHOPRIM
  24. TRIUMEQ [Concomitant]
     Active Substance: ABACAVIR SULFATE\DOLUTEGRAVIR SODIUM\LAMIVUDINE
  25. TRAZODONE [Concomitant]
     Active Substance: TRAZODONE HYDROCHLORIDE
  26. MELOXICAM. [Concomitant]
     Active Substance: MELOXICAM
  27. VIREAD [Suspect]
     Active Substance: TENOFOVIR DISOPROXIL FUMARATE
     Indication: HIV INFECTION
     Dosage: UNK
     Route: 048
     Dates: start: 20011101, end: 20080129
  28. HYDROCODONE BITARTRATE AND ACETAMINOPHEN [Concomitant]
     Active Substance: ACETAMINOPHEN\HYDROCODONE BITARTRATE
  29. NUVIGIL [Concomitant]
     Active Substance: ARMODAFINIL
  30. METHOCARBAMOL. [Concomitant]
     Active Substance: METHOCARBAMOL
  31. LISINOPRIL. [Concomitant]
     Active Substance: LISINOPRIL
  32. ANDROGEL [Concomitant]
     Active Substance: TESTOSTERONE
  33. IBUPROFEN. [Concomitant]
     Active Substance: IBUPROFEN
  34. ZOLPIDEM [Concomitant]
     Active Substance: ZOLPIDEM TARTRATE
  35. DESCOVY [Concomitant]
     Active Substance: EMTRICITABINE\TENOFOVIR ALAFENAMIDE FUMARATE
     Indication: HIV INFECTION
  36. EPIVIR [Concomitant]
     Active Substance: LAMIVUDINE
  37. SEROQUEL [Concomitant]
     Active Substance: QUETIAPINE FUMARATE
  38. WELLBUTRIN XL [Concomitant]
     Active Substance: BUPROPION HYDROCHLORIDE
  39. VIAGRA [Concomitant]
     Active Substance: SILDENAFIL CITRATE
  40. OXYCODONE AND ACETAMINOPHEN [Concomitant]
     Active Substance: ACETAMINOPHEN\OXYCODONE HYDROCHLORIDE

REACTIONS (10)
  - Tooth disorder [Recovered/Resolved]
  - Emotional distress [Unknown]
  - Pain [Unknown]
  - Tooth loss [Unknown]
  - Multiple fractures [Unknown]
  - Bone density decreased [Unknown]
  - Lumbar spinal stenosis [Not Recovered/Not Resolved]
  - Osteoporosis [Not Recovered/Not Resolved]
  - Osteonecrosis [Not Recovered/Not Resolved]
  - Hip surgery [Unknown]

NARRATIVE: CASE EVENT DATE: 20120725
